FAERS Safety Report 12441503 (Version 2)
Quarter: 2016Q2

REPORT INFORMATION
  Report Type: Spontaneous
  Country: US (occurrence: US)
  Receive Date: 20160607
  Receipt Date: 20160624
  Transmission Date: 20160815
  Serious: No
  Sender: FDA-Public Use
  Company Number: US-PFIZER INC-2016285152

PATIENT
  Sex: Male

DRUGS (2)
  1. ADVIL COLD AND SINUS [Suspect]
     Active Substance: IBUPROFEN\PSEUDOEPHEDRINE HYDROCHLORIDE
     Indication: NASOPHARYNGITIS
     Dosage: 2 DF, 3X/DAY  [IBUPROFEN 200 MG]/[PSEUDOEPHEDRINE HCL 30 MG]
     Route: 048
     Dates: start: 201605, end: 20160531
  2. ADVIL COLD AND SINUS [Suspect]
     Active Substance: IBUPROFEN\PSEUDOEPHEDRINE HYDROCHLORIDE
     Indication: SINUS CONGESTION
     Dosage: 1 DF, 3X/DAY [IBUPROFEN 200 MG]/[PSEUDOEPHEDRINE HCL 30 MG] FOR THE FIRST 5
     Route: 048

REACTIONS (3)
  - Intentional product use issue [Unknown]
  - Pollakiuria [Unknown]
  - Drug ineffective [Unknown]

NARRATIVE: CASE EVENT DATE: 201605
